APPROVED DRUG PRODUCT: LEQSELVI
Active Ingredient: DEURUXOLITINIB PHOSPHATE
Strength: EQ 8MG BASE
Dosage Form/Route: TABLET;ORAL
Application: N217900 | Product #001
Applicant: SUN PHARMACEUTICAL INDUSTRIES INC
Approved: Jul 25, 2024 | RLD: Yes | RS: Yes | Type: RX

PATENTS:
Patent 12285432 | Expires: Aug 11, 2042
Patent 12364699 | Expires: Oct 10, 2044
Patent 11919907 | Expires: May 21, 2041
Patent 10561659 | Expires: May 4, 2037
Patent 12076323 | Expires: May 4, 2037
Patent 12247034 | Expires: May 10, 2044

EXCLUSIVITY:
Code: NCE | Date: Jul 25, 2029